FAERS Safety Report 19044187 (Version 1)
Quarter: 2021Q1

REPORT INFORMATION
  Report Type: Report from Study
  Country: CN (occurrence: CN)
  Receive Date: 20210323
  Receipt Date: 20210323
  Transmission Date: 20210420
  Serious: Yes (Hospitalization)
  Sender: FDA-Public Use
  Company Number: CN-ASTRAZENECA-2020SF01006

PATIENT
  Age: 24410 Day
  Sex: Male

DRUGS (121)
  1. DURVALUMAB. [Suspect]
     Active Substance: DURVALUMAB
     Indication: TRANSITIONAL CELL CARCINOMA
     Route: 042
     Dates: start: 20200603, end: 20200603
  2. DURVALUMAB. [Suspect]
     Active Substance: DURVALUMAB
     Indication: TRANSITIONAL CELL CARCINOMA
     Route: 042
     Dates: start: 20200629, end: 20200629
  3. DURVALUMAB. [Suspect]
     Active Substance: DURVALUMAB
     Indication: TRANSITIONAL CELL CARCINOMA
     Route: 042
     Dates: start: 20201229, end: 20201229
  4. DURVALUMAB. [Suspect]
     Active Substance: DURVALUMAB
     Indication: TRANSITIONAL CELL CARCINOMA
     Route: 042
     Dates: start: 20210126, end: 20210126
  5. TREMELIMUMAB. [Suspect]
     Active Substance: TREMELIMUMAB
     Indication: TRANSITIONAL CELL CARCINOMA
     Route: 042
     Dates: start: 20200722, end: 20200722
  6. GEMCITABINE. [Suspect]
     Active Substance: GEMCITABINE
     Indication: TRANSITIONAL CELL CARCINOMA
     Route: 042
     Dates: start: 20200610, end: 20200610
  7. GEMCITABINE. [Suspect]
     Active Substance: GEMCITABINE
     Indication: TRANSITIONAL CELL CARCINOMA
     Route: 042
     Dates: start: 20200707, end: 20200707
  8. GEMCITABINE. [Suspect]
     Active Substance: GEMCITABINE
     Indication: TRANSITIONAL CELL CARCINOMA
     Route: 042
     Dates: start: 20200915, end: 20200915
  9. GEMCITABINE. [Suspect]
     Active Substance: GEMCITABINE
     Indication: TRANSITIONAL CELL CARCINOMA
     Route: 042
     Dates: start: 20201015, end: 20201015
  10. RECOMBINANT HUMAN INTERLEUKIN?11 FOR INJECTION [Concomitant]
     Indication: PLATELET COUNT DECREASED
     Route: 058
     Dates: start: 20200715, end: 20200719
  11. RECOMBINANT HUMAN GRANULOCYTE COLONY?STIMULATING FACTOR INJECTION [Concomitant]
     Indication: WHITE BLOOD CELL COUNT DECREASED
     Route: 058
     Dates: start: 20200801, end: 20200805
  12. RECOMBINANT HUMAN GRANULOCYTE COLONY?STIMULATING FACTOR INJECTION [Concomitant]
     Indication: WHITE BLOOD CELL COUNT INCREASED
     Route: 058
     Dates: start: 20200727, end: 20200729
  13. RECOMBINANT HUMAN GRANULOCYTE COLONY?STIMULATING FACTOR INJECTION [Concomitant]
     Indication: WHITE BLOOD CELL COUNT DECREASED
     Route: 058
     Dates: start: 20200727, end: 20200729
  14. MORPHINE SULFATE SUSTAINED?RELEASE TABLETS [Concomitant]
     Indication: ANALGESIC THERAPY
     Dosage: 30.0MG AS REQUIRED
     Route: 048
  15. RABEPRAZOLE [Concomitant]
     Active Substance: RABEPRAZOLE
     Indication: PROPHYLAXIS OF NAUSEA AND VOMITING
     Route: 042
     Dates: start: 20200603, end: 20200603
  16. PALONOSETRON HYDROCHLORIDE INJECTION [Concomitant]
     Active Substance: PALONOSETRON HYDROCHLORIDE
     Indication: PROPHYLAXIS
     Route: 042
     Dates: start: 20200603, end: 20200603
  17. SODIUM POTASSIUM MAGNESIUM CALCIUN AND GLUCOSE INJECTION [Concomitant]
     Indication: REFUSAL OF TREATMENT BY PATIENT
     Route: 042
     Dates: start: 20200610, end: 20200610
  18. 5% GLUCOSE AND SODIUM CHLORIDE INJECTION [Concomitant]
     Indication: HYPONATRAEMIA
     Route: 042
     Dates: start: 20200610, end: 20200610
  19. 5% GLUCOSE AND SODIUM CHLORIDE INJECTION [Concomitant]
     Indication: INFUSION
     Route: 042
     Dates: start: 20200707, end: 20200707
  20. VITAMIN C INJECTION [Concomitant]
     Active Substance: ASCORBIC ACID
     Indication: VITAMIN SUPPLEMENTATION
     Route: 042
     Dates: start: 20200707, end: 20200707
  21. GLYCEROL ENEMA [Concomitant]
     Indication: CONSTIPATION
     Route: 054
     Dates: start: 20200605, end: 20200629
  22. DURVALUMAB. [Suspect]
     Active Substance: DURVALUMAB
     Indication: TRANSITIONAL CELL CARCINOMA
     Route: 042
     Dates: start: 20200722, end: 20200722
  23. DURVALUMAB. [Suspect]
     Active Substance: DURVALUMAB
     Indication: TRANSITIONAL CELL CARCINOMA
     Route: 042
     Dates: start: 20200907, end: 20200907
  24. CARBOPLATIN. [Suspect]
     Active Substance: CARBOPLATIN
     Indication: TRANSITIONAL CELL CARCINOMA
     Route: 042
     Dates: start: 20200603, end: 20200603
  25. CARBOPLATIN. [Suspect]
     Active Substance: CARBOPLATIN
     Indication: TRANSITIONAL CELL CARCINOMA
     Route: 042
     Dates: start: 20200722, end: 20200722
  26. CARBOPLATIN. [Suspect]
     Active Substance: CARBOPLATIN
     Indication: TRANSITIONAL CELL CARCINOMA
     Route: 042
     Dates: start: 20201119, end: 20201119
  27. RECOMBINANT HUMAN INTERLEUKIN?11 FOR INJECTION [Concomitant]
     Indication: PLATELET COUNT DECREASED
     Route: 058
     Dates: start: 20200618, end: 20200621
  28. RECOMBINANT HUMAN GRANULOCYTE COLONY?STIMULATING FACTOR INJECTION [Concomitant]
     Indication: WHITE BLOOD CELL COUNT INCREASED
     Route: 058
     Dates: start: 20200801, end: 20200805
  29. RABEPRAZOLE [Concomitant]
     Active Substance: RABEPRAZOLE
     Indication: PROPHYLAXIS OF NAUSEA AND VOMITING
     Route: 042
     Dates: start: 20200729, end: 20200729
  30. PALONOSETRON HYDROCHLORIDE INJECTION [Concomitant]
     Active Substance: PALONOSETRON HYDROCHLORIDE
     Indication: PROPHYLAXIS OF NAUSEA AND VOMITING
     Route: 042
     Dates: start: 20200603, end: 20200603
  31. SODIUM POTASSIUM MAGNESIUM CALCIUN AND GLUCOSE INJECTION [Concomitant]
     Indication: REFUSAL OF TREATMENT BY PATIENT
     Route: 042
     Dates: start: 20200629, end: 20200629
  32. 5% GLUCOSE AND SODIUM CHLORIDE INJECTION [Concomitant]
     Indication: HYPONATRAEMIA
     Route: 042
     Dates: start: 20200707, end: 20200707
  33. OXYCODONE HYDROCHLORIDE PROLONGED?RELEASE TABLETS [Concomitant]
     Indication: ANALGESIC THERAPY
     Route: 048
     Dates: start: 20200528, end: 20200706
  34. TREMELIMUMAB. [Suspect]
     Active Substance: TREMELIMUMAB
     Indication: TRANSITIONAL CELL CARCINOMA
     Route: 042
     Dates: start: 20200907, end: 20200907
  35. GEMCITABINE. [Suspect]
     Active Substance: GEMCITABINE
     Indication: TRANSITIONAL CELL CARCINOMA
     Route: 042
     Dates: start: 20200907, end: 20200907
  36. GEMCITABINE. [Suspect]
     Active Substance: GEMCITABINE
     Indication: TRANSITIONAL CELL CARCINOMA
     Route: 042
     Dates: start: 20201119, end: 20201119
  37. GEMCITABINE. [Suspect]
     Active Substance: GEMCITABINE
     Indication: TRANSITIONAL CELL CARCINOMA
     Route: 042
     Dates: start: 20201127, end: 20201127
  38. CARBOPLATIN. [Suspect]
     Active Substance: CARBOPLATIN
     Indication: TRANSITIONAL CELL CARCINOMA
     Route: 042
     Dates: start: 20200907, end: 20200907
  39. RECOMBINANT HUMAN GRANULOCYTE COLONY?STIMULATION FACTOR INJECTION [Concomitant]
     Indication: WHITE BLOOD CELL COUNT DECREASED
     Route: 030
     Dates: start: 20200801, end: 20200801
  40. MECOBALAMIN TABLETS [Concomitant]
     Active Substance: METHYLCOBALAMIN
     Indication: ANALGESIC THERAPY
     Route: 048
     Dates: start: 20200603, end: 20200610
  41. RABEPRAZOLE [Concomitant]
     Active Substance: RABEPRAZOLE
     Indication: PROTOTHECOSIS
     Route: 042
     Dates: start: 20200610, end: 20200610
  42. RABEPRAZOLE [Concomitant]
     Active Substance: RABEPRAZOLE
     Indication: PROPHYLAXIS OF NAUSEA AND VOMITING
     Route: 042
     Dates: start: 20200707, end: 20200707
  43. PALONOSETRON HYDROCHLORIDE INJECTION [Concomitant]
     Active Substance: PALONOSETRON HYDROCHLORIDE
     Indication: PROPHYLAXIS OF NAUSEA AND VOMITING
     Route: 042
     Dates: start: 20200707, end: 20200707
  44. 5% GLUCOSE AND SODIUM CHLORIDE INJECTION [Concomitant]
     Indication: INFUSION
     Route: 042
     Dates: start: 20200729, end: 20200729
  45. 5% GLUCOSE AND SODIUM CHLORIDE INJECTION [Concomitant]
     Indication: HYPONATRAEMIA
     Route: 042
     Dates: start: 20200729, end: 20200729
  46. LORATADINE. [Concomitant]
     Active Substance: LORATADINE
     Indication: MACULOPATHY
     Route: 048
     Dates: start: 20200707, end: 20200712
  47. TREMELIMUMAB. [Suspect]
     Active Substance: TREMELIMUMAB
     Indication: TRANSITIONAL CELL CARCINOMA
     Route: 042
     Dates: start: 20200629, end: 20200629
  48. GEMCITABINE. [Suspect]
     Active Substance: GEMCITABINE
     Indication: TRANSITIONAL CELL CARCINOMA
     Route: 042
     Dates: start: 20200629, end: 20200629
  49. GEMCITABINE. [Suspect]
     Active Substance: GEMCITABINE
     Indication: TRANSITIONAL CELL CARCINOMA
     Route: 042
     Dates: start: 20200722, end: 20200722
  50. GEMCITABINE. [Suspect]
     Active Substance: GEMCITABINE
     Indication: TRANSITIONAL CELL CARCINOMA
     Route: 042
     Dates: start: 20200729, end: 20200729
  51. CARBOPLATIN. [Suspect]
     Active Substance: CARBOPLATIN
     Indication: TRANSITIONAL CELL CARCINOMA
     Route: 042
     Dates: start: 20200629, end: 20200629
  52. CARBOPLATIN. [Suspect]
     Active Substance: CARBOPLATIN
     Indication: TRANSITIONAL CELL CARCINOMA
     Route: 042
     Dates: start: 20201015, end: 20201015
  53. IRON POLYSACCHARIDE COMPLEX CAPSULES [Concomitant]
     Indication: HAEMORRHAGE
     Route: 048
     Dates: start: 20200730, end: 202008
  54. RABEPRAZOLE [Concomitant]
     Active Substance: RABEPRAZOLE
     Indication: PROTOTHECOSIS
     Route: 042
     Dates: start: 20200722, end: 20200722
  55. LYRICA (PREGABALIN CAPSULES) [Concomitant]
     Indication: ANALGESIC THERAPY
     Route: 048
     Dates: start: 20200603, end: 20200603
  56. PALONOSETRON HYDROCHLORIDE INJECTION [Concomitant]
     Active Substance: PALONOSETRON HYDROCHLORIDE
     Indication: PROPHYLAXIS OF NAUSEA AND VOMITING
     Route: 042
     Dates: start: 20200610, end: 20200610
  57. PALONOSETRON HYDROCHLORIDE INJECTION [Concomitant]
     Active Substance: PALONOSETRON HYDROCHLORIDE
     Indication: PROPHYLAXIS
     Route: 042
     Dates: start: 20200722, end: 20200722
  58. MONTMORILLONITE POWDER [Concomitant]
     Indication: DIARRHOEA
     Route: 048
     Dates: start: 20200701, end: 20200701
  59. 5% GLUCOSE AND SODIUM CHLORIDE INJECTION [Concomitant]
     Indication: INFUSION
     Route: 042
     Dates: start: 20200610, end: 20200610
  60. 5% GLUCOSE AND SODIUM CHLORIDE INJECTION 5% [Concomitant]
     Indication: INFUSION
     Route: 042
     Dates: start: 20200629, end: 20200629
  61. RECOMBINANT HUMAN GRANULOCYTE COLONY?STIMULATING FACTOR FOR INJECTION [Concomitant]
     Indication: WHITE BLOOD CELL COUNT DECREASED
     Route: 058
     Dates: start: 20200618, end: 20200622
  62. RECOMBINANT HUMAN GRANULOCYTE COLONY?STIMULATING FACTOR FOR INJECTION [Concomitant]
     Indication: WHITE BLOOD CELL COUNT DECREASED
     Route: 058
     Dates: start: 20200711, end: 20200715
  63. DURVALUMAB. [Suspect]
     Active Substance: DURVALUMAB
     Indication: TRANSITIONAL CELL CARCINOMA
     Route: 042
     Dates: start: 20201015, end: 20201015
  64. GEMCITABINE. [Suspect]
     Active Substance: GEMCITABINE
     Indication: TRANSITIONAL CELL CARCINOMA
     Route: 042
     Dates: start: 20201021, end: 20201021
  65. RECOMBINANT HUMAN INTERLEUKIN?11 FOR INJECTION [Concomitant]
     Indication: PLATELET COUNT DECREASED
     Route: 058
     Dates: start: 20200618, end: 20200621
  66. RECOMBINANT HUMAN INTERLEUKIN?11 FOR INJECTION [Concomitant]
     Indication: PLATELET COUNT DECREASED
     Route: 058
     Dates: start: 20200715, end: 20200719
  67. RECOMBINANT HUMAN GRANULOCYTE COLONY?STIMULATING FACTOR INJECTION [Concomitant]
     Indication: WHITE BLOOD CELL COUNT DECREASED
     Route: 042
     Dates: start: 20200706, end: 20200706
  68. COMPOUND PARACETAMOL TABLE [Concomitant]
     Indication: PYREXIA
     Route: 048
     Dates: start: 20200603, end: 20200604
  69. MORPHINE SULFATE SUSTAINED?RELEASE TABLETS [Concomitant]
     Indication: ANALGESIC THERAPY
     Route: 048
     Dates: start: 20200723, end: 202012
  70. RABEPRAZOLE [Concomitant]
     Active Substance: RABEPRAZOLE
     Indication: PROTOTHECOSIS
     Route: 042
     Dates: start: 20200603, end: 20200603
  71. RABEPRAZOLE [Concomitant]
     Active Substance: RABEPRAZOLE
     Indication: PROPHYLAXIS OF NAUSEA AND VOMITING
     Route: 042
     Dates: start: 20200629, end: 20200629
  72. FOSAPREPITANT DIMEGLUMINER FOR INJECTION [Concomitant]
     Indication: PROPHYLAXIS OF NAUSEA AND VOMITING
     Route: 042
     Dates: start: 20200629, end: 20200629
  73. PALONOSETRON HYDROCHLORIDE INJECTION [Concomitant]
     Active Substance: PALONOSETRON HYDROCHLORIDE
     Indication: PROPHYLAXIS
     Route: 042
     Dates: start: 20200610, end: 20200610
  74. CELEBREX (CELECOXIB CAPSULES) [Concomitant]
     Indication: ANALGESIC THERAPY
     Dosage: 400.00 MG TAKE IT IRREGULARLY
     Route: 048
     Dates: start: 20200611
  75. SODIUM POTASSIUM MAGNESIUM CALCIUN AND GLUCOSE INJECTION [Concomitant]
     Indication: HYPOCALCAEMIA
     Route: 042
     Dates: start: 20200610, end: 20200610
  76. VITAMIN C INJECTION [Concomitant]
     Active Substance: ASCORBIC ACID
     Indication: VITAMIN SUPPLEMENTATION
     Route: 042
     Dates: start: 20200629, end: 20200629
  77. RECOMBINANT HUMAN GRANULOCYTE COLONY?STIMULATING FACTOR FOR INJECTION [Concomitant]
     Indication: NEUTROPHIL COUNT DECREASED
     Route: 058
     Dates: start: 20200711, end: 20200715
  78. FOSAPREPITANT [Concomitant]
     Active Substance: FOSAPREPITANT
     Indication: PROPHYLAXIS OF NAUSEA AND VOMITING
     Route: 042
     Dates: start: 20200722, end: 20200722
  79. HYDROCHLOROTHIAZIDE. [Concomitant]
     Active Substance: HYDROCHLOROTHIAZIDE
     Indication: CARDIAC FAILURE
     Route: 048
     Dates: start: 20200722, end: 20200726
  80. DURVALUMAB. [Suspect]
     Active Substance: DURVALUMAB
     Indication: TRANSITIONAL CELL CARCINOMA
     Route: 042
     Dates: start: 20201119, end: 20201119
  81. IRON POLYSACCHARIDE COMPLEX CAPSULES [Concomitant]
     Indication: ANAEMIA
     Route: 048
     Dates: start: 20200730, end: 202008
  82. RECOMBINANT HUMAN GRANULOCYTE COLONY?STIMULATING FACTOR INJECTION [Concomitant]
     Indication: WHITE BLOOD CELL COUNT DECREASED
     Route: 058
     Dates: start: 20200727, end: 20200729
  83. MORPHINE SULFATE SUSTAINED?RELEASE TABLETS [Concomitant]
     Indication: ANALGESIC THERAPY
     Route: 048
     Dates: start: 20200706, end: 20200722
  84. VITAMIN C [Concomitant]
     Active Substance: ASCORBIC ACID
     Indication: VITAMIN SUPPLEMENTATION
     Route: 042
     Dates: start: 20200603, end: 20200603
  85. RABEPRAZOLE [Concomitant]
     Active Substance: RABEPRAZOLE
     Indication: PROTOTHECOSIS
     Route: 042
     Dates: start: 20200629, end: 20200629
  86. RABEPRAZOLE [Concomitant]
     Active Substance: RABEPRAZOLE
     Indication: PROTOTHECOSIS
     Route: 042
     Dates: start: 20200729, end: 20200729
  87. FOSAPREPITANT DIMEGLUMINER FOR INJECTION [Concomitant]
     Indication: PROPHYLAXIS
     Route: 042
     Dates: start: 20200629, end: 20200629
  88. SODIUM POTASSIUM MAGNESIUM CALCIUN AND GLUCOSE INJECTION [Concomitant]
     Indication: REFUSAL OF TREATMENT BY PATIENT
     Route: 042
     Dates: start: 20200707, end: 20200707
  89. SODIUM POTASSIUM MAGNESIUM CALCIUN AND GLUCOSE INJECTION [Concomitant]
     Indication: HYPOCALCAEMIA
     Route: 042
     Dates: start: 20200707, end: 20200707
  90. SODIUM POTASSIUM MAGNESIUM CALCIUN AND GLUCOSE INJECTION [Concomitant]
     Indication: REFUSAL OF TREATMENT BY PATIENT
     Route: 042
     Dates: start: 20200722, end: 20200722
  91. 5% GLUCOSE INJECTION [Concomitant]
     Active Substance: DEXTROSE
     Indication: FLUSHING
     Route: 042
     Dates: start: 20200603, end: 20200603
  92. LEUCOGEN TABLETS [Concomitant]
     Indication: WHITE BLOOD CELL COUNT DECREASED
     Route: 048
     Dates: start: 20200706, end: 20200706
  93. RECOMBINANT HUMAN GRANULOCYTE COLONY?STIMULATING FACTOR FOR INJECTION [Concomitant]
     Indication: NEUTROPHIL COUNT DECREASED
     Route: 058
     Dates: start: 20200618, end: 20200622
  94. TREMELIMUMAB. [Suspect]
     Active Substance: TREMELIMUMAB
     Indication: TRANSITIONAL CELL CARCINOMA
     Route: 042
     Dates: start: 20200603, end: 20200603
  95. GEMCITABINE. [Suspect]
     Active Substance: GEMCITABINE
     Indication: TRANSITIONAL CELL CARCINOMA
     Route: 042
     Dates: start: 20200603, end: 20200603
  96. IRON POLYSACCHARIDE COMPLEX CAPSULES [Concomitant]
     Indication: HAEMORRHAGE
     Route: 048
     Dates: start: 20200730
  97. MORPHINE SULFATE SUSTAINED?RELEASE TABLETS [Concomitant]
     Indication: ANALGESIC THERAPY
     Route: 048
     Dates: start: 20200723
  98. VITAMIN C [Concomitant]
     Active Substance: ASCORBIC ACID
     Indication: VITAMIN SUPPLEMENTATION
     Route: 042
     Dates: start: 20200610, end: 20200610
  99. VITAMIN C [Concomitant]
     Active Substance: ASCORBIC ACID
     Indication: VITAMIN SUPPLEMENTATION
     Route: 042
     Dates: start: 20200729, end: 20200729
  100. COMPOUND DEXAMETHASONE ACETATE CREAM(DEXAMETHASON E) [Concomitant]
     Indication: MACULOPATHY
     Dosage: DF UNKNOWN
     Route: 061
     Dates: start: 20200630, end: 20200709
  101. RABEPRAZOLE [Concomitant]
     Active Substance: RABEPRAZOLE
     Indication: PROPHYLAXIS OF NAUSEA AND VOMITING
     Route: 042
     Dates: start: 20200610, end: 20200610
  102. RABEPRAZOLE [Concomitant]
     Active Substance: RABEPRAZOLE
     Indication: PROTOTHECOSIS
     Route: 042
     Dates: start: 20200707, end: 20200707
  103. FOSAPREPITANT DIMEGLUMINER FOR INJECTION [Concomitant]
     Indication: PROPHYLAXIS OF NAUSEA AND VOMITING
     Route: 042
     Dates: start: 20200603, end: 20200603
  104. PALONOSETRON HYDROCHLORIDE INJECTION [Concomitant]
     Active Substance: PALONOSETRON HYDROCHLORIDE
     Indication: PROPHYLAXIS
     Route: 042
     Dates: start: 20200629, end: 20200629
  105. PALONOSETRON HYDROCHLORIDE INJECTION [Concomitant]
     Active Substance: PALONOSETRON HYDROCHLORIDE
     Indication: PROPHYLAXIS
     Route: 042
     Dates: start: 20200707, end: 20200707
  106. SODIUM POTASSIUM MAGNESIUM CALCIUN AND GLUCOSE INJECTION [Concomitant]
     Indication: HYPOCALCAEMIA
     Route: 042
     Dates: start: 20200629, end: 20200629
  107. SODIUM POTASSIUM MAGNESIUM CALCIUN AND GLUCOSE INJECTION [Concomitant]
     Indication: HYPOCALCAEMIA
     Route: 042
     Dates: start: 20200722, end: 20200722
  108. LORATADINE TABLETS [Concomitant]
     Active Substance: LORATADINE
     Indication: MACULOPATHY
     Route: 048
     Dates: start: 20200628, end: 20200703
  109. HYDROCHLOROTHIAZIDE. [Concomitant]
     Active Substance: HYDROCHLOROTHIAZIDE
     Indication: URINARY TRACT OBSTRUCTION
     Route: 048
     Dates: start: 20200722, end: 20200726
  110. IRON POLYSACCHARIDE COMPLEX CAPSULES [Concomitant]
     Indication: ANAEMIA
     Route: 048
     Dates: start: 20200730
  111. RECOMBINANT HUMAN GRANULOCYTE COLONY?STIMULATING FACTOR INJECTION [Concomitant]
     Indication: WHITE BLOOD CELL COUNT DECREASED
     Route: 058
     Dates: start: 20200801, end: 20200805
  112. RECOMBINANT HUMAN GRANULOCYTE COLONY?STIMULATING FACTOR INJECTION [Concomitant]
     Indication: WHITE BLOOD CELL COUNT INCREASED
     Route: 042
     Dates: start: 20200706, end: 20200706
  113. RECOMBINANT HUMAN GRANULOCYTE COLONY?STIMULATING FACTOR INJECTION [Concomitant]
     Indication: WHITE BLOOD CELL COUNT DECREASED
     Route: 042
     Dates: start: 20200706, end: 20200706
  114. VITAMIN C [Concomitant]
     Active Substance: ASCORBIC ACID
     Indication: VITAMIN SUPPLEMENTATION
     Route: 042
     Dates: start: 20200722, end: 20200722
  115. RABEPRAZOLE [Concomitant]
     Active Substance: RABEPRAZOLE
     Indication: PROPHYLAXIS OF NAUSEA AND VOMITING
     Route: 042
     Dates: start: 20200722, end: 20200722
  116. FOSAPREPITANT DIMEGLUMINER FOR INJECTION [Concomitant]
     Indication: PROPHYLAXIS
     Route: 042
     Dates: start: 20200603, end: 20200603
  117. PALONOSETRON HYDROCHLORIDE INJECTION [Concomitant]
     Active Substance: PALONOSETRON HYDROCHLORIDE
     Indication: PROPHYLAXIS OF NAUSEA AND VOMITING
     Route: 042
     Dates: start: 20200629, end: 20200629
  118. PALONOSETRON HYDROCHLORIDE INJECTION [Concomitant]
     Active Substance: PALONOSETRON HYDROCHLORIDE
     Indication: PROPHYLAXIS OF NAUSEA AND VOMITING
     Route: 042
     Dates: start: 20200722, end: 20200722
  119. PALONOSETRON HYDROCHLORIDE INJECTION [Concomitant]
     Active Substance: PALONOSETRON HYDROCHLORIDE
     Indication: PROPHYLAXIS OF NAUSEA AND VOMITING
     Route: 042
     Dates: start: 20200729, end: 20200729
  120. PALONOSETRON HYDROCHLORIDE INJECTION [Concomitant]
     Active Substance: PALONOSETRON HYDROCHLORIDE
     Indication: PROPHYLAXIS
     Route: 042
     Dates: start: 20200729, end: 20200729
  121. CELECOXIB. [Concomitant]
     Active Substance: CELECOXIB
     Indication: ANALGESIC THERAPY
     Dosage: 400.0MG AS REQUIRED
     Route: 048
     Dates: start: 20200611, end: 202101

REACTIONS (1)
  - Platelet count decreased [Recovered/Resolved]

NARRATIVE: CASE EVENT DATE: 20200804
